FAERS Safety Report 4585545-6 (Version None)
Quarter: 2005Q1

REPORT INFORMATION
  Report Type: 
  Country: None (occurrence: None)
  Receive Date: 20050217
  Receipt Date: 20041122
  Transmission Date: 20050727
  Serious: Yes (Hospitalization)
  Sender: FDA-Public Use
  Company Number: JP-BRISTOL-MYERS SQUIBB COMPANY-12777876

PATIENT
  Age: 90 Year
  Sex: Female

DRUGS (8)
  1. GATIFLO TABS 100 MG [Suspect]
     Indication: INFECTION PROPHYLAXIS
     Dosage: TOOK 200 MG ON 08-NOV-2004, 200 MG TWICE DAILY ON 09-NOV-2004 + 10-NOV-2004
     Route: 048
     Dates: start: 20041108, end: 20041110
  2. NORVASC [Concomitant]
     Route: 048
     Dates: start: 20020303, end: 20041111
  3. THEOLONG [Concomitant]
     Route: 048
     Dates: start: 20020131, end: 20041116
  4. ONON [Concomitant]
     Route: 048
     Dates: start: 20020131, end: 20041111
  5. BUFFERIN CHILD [Concomitant]
     Route: 048
     Dates: start: 20040813, end: 20041111
  6. BENZALIN [Concomitant]
     Route: 048
     Dates: start: 20020131
  7. SENNOSIDE [Concomitant]
     Route: 048
     Dates: start: 20020131
  8. MARCAINE [Concomitant]
     Indication: ANAESTHESIA
     Dates: start: 20041108, end: 20041111

REACTIONS (7)
  - ABDOMINAL DISTENSION [None]
  - DEPRESSED LEVEL OF CONSCIOUSNESS [None]
  - HEADACHE [None]
  - HYPERHIDROSIS [None]
  - HYPOGLYCAEMIA [None]
  - MALAISE [None]
  - PYREXIA [None]
